FAERS Safety Report 7102502-6 (Version None)
Quarter: 2010Q4

REPORT INFORMATION
  Report Type: 
  Country: None (occurrence: None)
  Receive Date: 20101115
  Receipt Date: 20101108
  Transmission Date: 20110411
  Serious: Yes (Congenital Anomaly)
  Sender: FDA-Public Use
  Company Number: GB-TEVA-254684ISR

PATIENT
  Age: 1 Hour
  Sex: Male
  Weight: 3.94 kg

DRUGS (3)
  1. PROCHLORPERAZINE MALEATE [Suspect]
     Route: 064
     Dates: start: 20100303
  2. PROMETHAZINE TEOCLATE [Suspect]
     Indication: VOMITING
     Route: 064
     Dates: start: 20100407, end: 20100804
  3. PROMETHAZINE HYDROCHLORIDE [Suspect]
     Route: 064
     Dates: start: 20100406

REACTIONS (3)
  - ANKYLOGLOSSIA CONGENITAL [None]
  - CAESAREAN SECTION [None]
  - MATERNAL DRUGS AFFECTING FOETUS [None]
